FAERS Safety Report 5204065-9 (Version None)
Quarter: 2007Q1

REPORT INFORMATION
  Report Type: 
  Country: None (occurrence: None)
  Receive Date: 20070110
  Receipt Date: 20051109
  Transmission Date: 20070707
  Serious: No
  Sender: FDA-Public Use
  Company Number: US-BRISTOL-MYERS SQUIBB COMPANY-13174503

PATIENT
  Age: 45 Year
  Sex: Female
  Weight: 100 kg

DRUGS (5)
  1. ABILIFY [Suspect]
     Indication: BIPOLAR II DISORDER
  2. SYNTHROID [Concomitant]
  3. ADDERALL 10 [Concomitant]
  4. ATENOLOL [Concomitant]
  5. PAXIL [Concomitant]

REACTIONS (1)
  - DRUG INEFFECTIVE [None]
